FAERS Safety Report 20654749 (Version 1)
Quarter: 2022Q1

REPORT INFORMATION
  Report Type: Spontaneous
  Country: US (occurrence: None)
  Receive Date: 20220329
  Receipt Date: 20220329
  Transmission Date: 20220424
  Serious: Yes (Death)
  Sender: FDA-Public Use
  Company Number: None

PATIENT
  Age: 62 Year
  Sex: Male

DRUGS (12)
  1. CYCLOPHOSPHAMIDE [Suspect]
     Active Substance: CYCLOPHOSPHAMIDE
     Indication: Prostate cancer
     Dosage: OTHER FREQUENCY : QAM,QNOON;?
     Route: 048
     Dates: start: 20210915
  2. FOLIC ACID [Concomitant]
     Active Substance: FOLIC ACID
  3. VITAMINS [Concomitant]
     Active Substance: VITAMINS
  4. GABAPENTIN [Concomitant]
     Active Substance: GABAPENTIN
  5. ONDANSETRON [Concomitant]
     Active Substance: ONDANSETRON
  6. DEXAMETHASONE [Concomitant]
     Active Substance: DEXAMETHASONE
  7. LEVOTHYROXINE [Concomitant]
     Active Substance: LEVOTHYROXINE
  8. OXYCONTIN [Concomitant]
     Active Substance: OXYCODONE HYDROCHLORIDE
  9. OXYCODONE [Concomitant]
     Active Substance: OXYCODONE
  10. SYMBICORT [Concomitant]
     Active Substance: BUDESONIDE\FORMOTEROL FUMARATE DIHYDRATE
  11. MIRTAZAPINE [Concomitant]
     Active Substance: MIRTAZAPINE
  12. ATORVASTATIN [Concomitant]
     Active Substance: ATORVASTATIN

REACTIONS (1)
  - Death [None]

NARRATIVE: CASE EVENT DATE: 20220329
